FAERS Safety Report 21014891 (Version 3)
Quarter: 2022Q3

REPORT INFORMATION
  Report Type: Report from Study
  Country: US (occurrence: US)
  Receive Date: 20220628
  Receipt Date: 20220701
  Transmission Date: 20221027
  Serious: No
  Sender: FDA-Public Use
  Company Number: US-NOVARTISTESTPH-NVSC2022US146751

PATIENT
  Sex: Male

DRUGS (1)
  1. ENTRESTO [Suspect]
     Active Substance: SACUBITRIL\VALSARTAN
     Indication: Myocardial infarction
     Dosage: 49/51 MG, BID, (1 IN THE MORNING AND 1 IN THE EVENING)
     Route: 048

REACTIONS (4)
  - Wrong technique in product usage process [Unknown]
  - Hyperhidrosis [Unknown]
  - Dysphagia [Unknown]
  - Product use in unapproved indication [Unknown]
